FAERS Safety Report 9154775 (Version 1)
Quarter: 2013Q1

REPORT INFORMATION
  Report Type: Spontaneous
  Country: BR (occurrence: None)
  Receive Date: 20130208
  Receipt Date: 20130208
  Transmission Date: 20140127
  Serious: Yes (Hospitalization)
  Sender: FDA-Public Use
  Company Number: DSJ-2013-02279

PATIENT
  Age: 37 Year
  Sex: Male
  Weight: 84 kg

DRUGS (2)
  1. BENICAR [Suspect]
     Indication: HYPERTENSION
     Route: 048
     Dates: start: 2010, end: 201010
  2. CHLORTHALIDONE (CHLORTALIDONE) (CHLORTALIDONE) [Concomitant]

REACTIONS (3)
  - Blood pressure increased [None]
  - Drug administration error [None]
  - Meniscus operation [None]
